FAERS Safety Report 10288855 (Version 1)
Quarter: 2014Q3

REPORT INFORMATION
  Report Type: Spontaneous
  Country: DE (occurrence: DE)
  Receive Date: 20140709
  Receipt Date: 20140709
  Transmission Date: 20150326
  Serious: Yes (Other)
  Sender: FDA-Public Use
  Company Number: PHHY2014DE083435

PATIENT
  Age: 30 Year
  Sex: Female

DRUGS (4)
  1. CICLOSPORIN [Suspect]
     Active Substance: CYCLOSPORINE
     Indication: PROPHYLAXIS AGAINST GRAFT VERSUS HOST DISEASE
  2. RANIBIZUMAB [Suspect]
     Active Substance: RANIBIZUMAB
     Route: 031
  3. METHOTREXATE [Suspect]
     Active Substance: METHOTREXATE
  4. BEVACIZUMAB [Suspect]
     Active Substance: BEVACIZUMAB
     Route: 031

REACTIONS (2)
  - Vitreous haemorrhage [Unknown]
  - Graft versus host disease in skin [Unknown]
